FAERS Safety Report 8482693-5 (Version None)
Quarter: 2012Q3

REPORT INFORMATION
  Report Type: 
  Country: None (occurrence: None)
  Receive Date: 20120702
  Receipt Date: 20120627
  Transmission Date: 20120928
  Serious: Yes (Hospitalization, Other)
  Sender: FDA-Public Use
  Company Number: US-MERCK-0403USA00626

PATIENT
  Age: 67 Year
  Sex: Female
  Weight: 68 kg

DRUGS (23)
  1. VITAMIN D (UNSPECIFIED) [Concomitant]
     Route: 065
  2. FOSAMAX [Suspect]
     Route: 048
     Dates: start: 19990301, end: 20000101
  3. FOSAMAX [Suspect]
     Indication: OSTEOPENIA
     Route: 048
     Dates: start: 20000101, end: 20040301
  4. FOSAMAX [Suspect]
     Indication: OSTEOPOROSIS
     Route: 048
     Dates: start: 20000101, end: 20040301
  5. ASPIRIN [Concomitant]
     Route: 065
  6. LEXAPRO [Concomitant]
     Route: 065
  7. FOSAMAX [Suspect]
     Route: 048
     Dates: start: 19980101
  8. BEXTRA [Concomitant]
     Indication: OSTEOARTHRITIS
     Route: 065
  9. FOSAMAX [Suspect]
     Route: 048
     Dates: start: 19990301, end: 20000101
  10. CALCIUM (UNSPECIFIED) [Concomitant]
     Route: 065
     Dates: start: 20030101
  11. SYNTHROID [Concomitant]
     Route: 065
  12. DYAZIDE [Concomitant]
     Indication: OEDEMA
     Route: 065
  13. FOSAMAX [Suspect]
     Route: 048
  14. AMBIEN [Concomitant]
     Route: 065
  15. PRAVACHOL [Concomitant]
     Indication: HYPERCHOLESTEROLAEMIA
     Route: 065
  16. LESCOL XL [Concomitant]
     Indication: HYPERCHOLESTEROLAEMIA
     Route: 065
  17. DIOVAN HCT [Concomitant]
     Indication: HYPERTENSION
     Route: 065
  18. FOSAMAX [Suspect]
     Route: 048
  19. FOSAMAX [Suspect]
     Route: 048
     Dates: start: 19980101
  20. ESTROGENS (UNSPECIFIED) [Concomitant]
     Route: 065
     Dates: start: 19870101, end: 20021001
  21. DYAZIDE [Concomitant]
     Indication: HYPERTENSION
     Route: 065
  22. ACETAMINOPHEN AND HYDROCODONE BITARTRATE [Concomitant]
     Route: 065
  23. ZETIA [Concomitant]
     Indication: HYPERCHOLESTEROLAEMIA
     Route: 065

REACTIONS (31)
  - METABOLIC DISORDER [None]
  - ANAEMIA POSTOPERATIVE [None]
  - HAEMATURIA [None]
  - TENDERNESS [None]
  - OROPHARYNGEAL PAIN [None]
  - DEPRESSION [None]
  - FRACTURE DELAYED UNION [None]
  - MUSCLE SPASMS [None]
  - GOITRE [None]
  - GASTROOESOPHAGEAL REFLUX DISEASE [None]
  - CARPAL TUNNEL SYNDROME [None]
  - CAROTID ARTERY STENOSIS [None]
  - NEPHROLITHIASIS [None]
  - ANXIETY [None]
  - SPINAL OSTEOARTHRITIS [None]
  - HAEMORRHOIDS [None]
  - BRONCHITIS [None]
  - INTERVERTEBRAL DISC DEGENERATION [None]
  - BREAST CANCER [None]
  - LOW TURNOVER OSTEOPATHY [None]
  - INTERVERTEBRAL DISC DISORDER [None]
  - FAECES DISCOLOURED [None]
  - VERTIGO POSITIONAL [None]
  - FEMUR FRACTURE [None]
  - BACK DISORDER [None]
  - BAROTRAUMA [None]
  - MYALGIA [None]
  - HYPOTHYROIDISM [None]
  - HYPOPARATHYROIDISM [None]
  - BURSITIS [None]
  - CONSTIPATION [None]
